FAERS Safety Report 13499617 (Version 2)
Quarter: 2017Q4

REPORT INFORMATION
  Report Type: Report from Study
  Country: JP (occurrence: JP)
  Receive Date: 20170501
  Receipt Date: 20171031
  Transmission Date: 20180320
  Serious: Yes (Hospitalization)
  Sender: FDA-Public Use
  Company Number: PHJP2017JP014524

PATIENT
  Sex: Male

DRUGS (1)
  1. ZYKADIA [Suspect]
     Active Substance: CERITINIB
     Indication: NON-SMALL CELL LUNG CANCER
     Dosage: 750 MG, QD
     Route: 048
     Dates: start: 201612

REACTIONS (2)
  - Hepatic function abnormal [Not Recovered/Not Resolved]
  - Pleural effusion [Unknown]

NARRATIVE: CASE EVENT DATE: 201707
